FAERS Safety Report 17981219 (Version 3)
Quarter: 2020Q4

REPORT INFORMATION
  Report Type: Report from Study
  Country: FR (occurrence: FR)
  Receive Date: 20200705
  Receipt Date: 20201112
  Transmission Date: 20210113
  Serious: Yes (Hospitalization)
  Sender: FDA-Public Use
  Company Number: FR-ROCHE-2618333

PATIENT
  Age: 47 Year
  Sex: Female
  Weight: 50 kg

DRUGS (7)
  1. CARBOPLATIN. [Suspect]
     Active Substance: CARBOPLATIN
     Indication: CERVIX CARCINOMA
     Dosage: LAST DOSE RECEIVED ON 04/JUN/2020 (466 MG)?ON 25/JUN/2020, SHE RECEIVED MOST RECENT DOSE OF CARBOPLA
     Route: 042
     Dates: start: 20200514
  2. AMOXICILLIN. [Concomitant]
     Active Substance: AMOXICILLIN
     Dates: start: 20200529, end: 20200604
  3. ATEZOLIZUMAB. [Suspect]
     Active Substance: ATEZOLIZUMAB
     Indication: CERVIX CARCINOMA
     Dosage: LAST DOSE RECEIVED ON 04/JUN/2020 (1200 MG) PRIOR TO EVENT ONSET.?ON 25/JUN/2020, SHE RECEIVED MOST
     Route: 042
     Dates: start: 20200514
  4. BEVACIZUMAB. [Suspect]
     Active Substance: BEVACIZUMAB
     Indication: CERVIX CARCINOMA
     Dosage: LAST DOSE RECEIVED ON 04/JUN/2020 (720 MG) PRIOR TO EVENT ONSET
     Route: 042
     Dates: start: 20200514
  5. PACLITAXEL. [Suspect]
     Active Substance: PACLITAXEL
     Indication: CERVIX CARCINOMA
     Dosage: LAST DOSE RECEIVED ON 04/JUN/2020 (257 MG) PRIOR TO EVENT ONSET?ON 25/JUN/2020, SHE RECEIVED MOST RE
     Route: 042
     Dates: start: 20200514
  6. NITROFURANTOIN. [Concomitant]
     Active Substance: NITROFURANTOIN
     Dates: start: 20200604
  7. PARACETAMOL [Concomitant]
     Active Substance: ACETAMINOPHEN
     Indication: HEADACHE
     Route: 048
     Dates: start: 20200819

REACTIONS (4)
  - Urinary fistula [Not Recovered/Not Resolved]
  - Pyelonephritis [Not Recovered/Not Resolved]
  - Pyelonephritis [Recovered/Resolved]
  - Pyelonephritis [Not Recovered/Not Resolved]

NARRATIVE: CASE EVENT DATE: 20200529
